FAERS Safety Report 10182701 (Version 1)
Quarter: 2014Q2

REPORT INFORMATION
  Report Type: Spontaneous
  Country: US (occurrence: None)
  Receive Date: 20140519
  Receipt Date: 20140519
  Transmission Date: 20141212
  Serious: Yes (Other)
  Sender: FDA-Public Use
  Company Number: None

PATIENT
  Age: 31 Year
  Sex: Female
  Weight: 78.47 kg

DRUGS (2)
  1. ZONEGRAN [Suspect]
     Indication: HEADACHE
     Dosage: 3 CAPSULES AT BEDTIME ONCE DAILY
     Route: 048
     Dates: start: 20130222, end: 20131112
  2. ZONEGRAN [Suspect]
     Indication: INTERVERTEBRAL DISC PROTRUSION
     Dosage: 3 CAPSULES AT BEDTIME ONCE DAILY
     Route: 048
     Dates: start: 20130222, end: 20131112

REACTIONS (2)
  - Tremor [None]
  - Musculoskeletal disorder [None]
